FAERS Safety Report 6568149-5 (Version None)
Quarter: 2010Q1

REPORT INFORMATION
  Report Type: 
  Country: None (occurrence: None)
  Receive Date: 20100203
  Receipt Date: 20100126
  Transmission Date: 20100710
  Serious: Yes (Other)
  Sender: FDA-Public Use
  Company Number: US-BAYER-201012591NA

PATIENT
  Age: 26 Year
  Sex: Female

DRUGS (2)
  1. MIRENA [Suspect]
     Indication: CONTRACEPTION
     Dosage: CONTINUOUS
     Route: 015
     Dates: start: 20070101
  2. MOTRIN [Concomitant]
     Indication: ABDOMINAL PAIN
     Dosage: UNKNOWN DOSAGE

REACTIONS (4)
  - ABDOMINAL PAIN [None]
  - DEVICE DISLOCATION [None]
  - DIARRHOEA [None]
  - VOMITING [None]
